FAERS Safety Report 7770799-5 (Version None)
Quarter: 2011Q3

REPORT INFORMATION
  Report Type: 
  Country: None (occurrence: None)
  Receive Date: 20110922
  Receipt Date: 20110608
  Transmission Date: 20111222
  Serious: No
  Sender: FDA-Public Use
  Company Number: US-ASTRAZENECA-2011SE34743

PATIENT
  Age: 54 Year
  Sex: Female

DRUGS (1)
  1. SEROQUEL XR [Suspect]
     Indication: BIPOLAR DISORDER
     Route: 048

REACTIONS (8)
  - THYROID DISORDER [None]
  - FATIGUE [None]
  - DIABETES MELLITUS [None]
  - MALAISE [None]
  - OEDEMA PERIPHERAL [None]
  - SLEEP DISORDER [None]
  - AMNESIA [None]
  - DRUG DOSE OMISSION [None]
